FAERS Safety Report 9292277 (Version 1)
Quarter: 2013Q1

REPORT INFORMATION
  Report Type: Spontaneous
  Country: US (occurrence: None)
  Receive Date: 20121214
  Receipt Date: 20121214
  Transmission Date: 20140127
  Serious: No
  Sender: FDA-Public Use
  Company Number: E7389-03132-SPO-US

PATIENT
  Age: 75 Year
  Sex: Female

DRUGS (1)
  1. HALAVEN [Suspect]
     Indication: BREAST CANCER METASTATIC
     Route: 042
     Dates: start: 20120926

REACTIONS (1)
  - Rash generalised [None]
